FAERS Safety Report 16226660 (Version 1)
Quarter: 2019Q2

REPORT INFORMATION
  Report Type: Spontaneous
  Country: CA (occurrence: CA)
  Receive Date: 20190423
  Receipt Date: 20190423
  Transmission Date: 20190711
  Serious: Yes (Other)
  Sender: FDA-Public Use
  Company Number: CA-TEVA-2019-CA-1039461

PATIENT
  Age: 37 Year
  Sex: Male

DRUGS (3)
  1. CIPROFLOXACIN. [Suspect]
     Active Substance: CIPROFLOXACIN
     Indication: ANORECTAL DISCOMFORT
     Route: 065
  2. METRONIDAZOLE. [Suspect]
     Active Substance: METRONIDAZOLE
     Indication: ANORECTAL DISCOMFORT
     Route: 065
  3. AMOXI-CLAV [Concomitant]
     Active Substance: AMOXICILLIN\CLAVULANATE POTASSIUM
     Indication: ANORECTAL DISCOMFORT
     Dosage: THERAPY DURATION- -120.0

REACTIONS (6)
  - Aphthous ulcer [Unknown]
  - Anal inflammation [Unknown]
  - Anal abscess [Unknown]
  - Drug ineffective [Unknown]
  - Condition aggravated [Unknown]
  - Rectal haemorrhage [Unknown]
